FAERS Safety Report 4279751-8 (Version None)
Quarter: 2004Q1

REPORT INFORMATION
  Report Type: 
  Country: None (occurrence: None)
  Receive Date: 20040128
  Receipt Date: 20040119
  Transmission Date: 20041129
  Serious: Yes (Other)
  Sender: FDA-Public Use
  Company Number: 200410122JP

PATIENT
  Age: 68 Year
  Sex: Male

DRUGS (3)
  1. TAXOTERE [Suspect]
     Indication: CARCINOMA
     Route: 013
     Dates: start: 20030801, end: 20030801
  2. CISPLATIN [Concomitant]
     Indication: CARCINOMA
     Route: 041
  3. FLUOROURACIL [Concomitant]
     Indication: CARCINOMA
     Route: 041

REACTIONS (1)
  - DYSPHAGIA [None]
